FAERS Safety Report 20673650 (Version 4)
Quarter: 2022Q3

REPORT INFORMATION
  Report Type: Report from Study
  Country: US (occurrence: US)
  Receive Date: 20220405
  Receipt Date: 20220629
  Transmission Date: 20221027
  Serious: No
  Sender: FDA-Public Use
  Company Number: US-NOVARTISTESTPH-NVSC2022US076988

PATIENT
  Age: 56 Year
  Sex: Female

DRUGS (2)
  1. ENTRESTO [Suspect]
     Active Substance: SACUBITRIL\VALSARTAN
     Indication: Cardiac failure
     Dosage: 1 DOSAGE FORM, BID (24/26 MG)
     Route: 048
     Dates: start: 202112
  2. JARDIANCE [Concomitant]
     Active Substance: EMPAGLIFLOZIN
     Indication: Cardiac disorder
     Dosage: UNK
     Route: 065

REACTIONS (8)
  - Depressed mood [Unknown]
  - Memory impairment [Unknown]
  - Haematuria [Not Recovered/Not Resolved]
  - Respiratory disorder [Unknown]
  - Fatigue [Recovering/Resolving]
  - Dizziness [Unknown]
  - Hypotension [Not Recovered/Not Resolved]
  - Cough [Unknown]

NARRATIVE: CASE EVENT DATE: 20220101
